FAERS Safety Report 7560915-2 (Version None)
Quarter: 2011Q2

REPORT INFORMATION
  Report Type: 
  Country: None (occurrence: None)
  Receive Date: 20110621
  Receipt Date: 20100723
  Transmission Date: 20111010
  Serious: No
  Sender: FDA-Public Use
  Company Number: US-ASTRAZENECA-2010SE33845

PATIENT
  Age: 65 Year
  Sex: Male
  Weight: 105.2 kg

DRUGS (5)
  1. ATACAND [Suspect]
     Route: 048
     Dates: start: 20100718, end: 20100720
  2. LIPITOR [Concomitant]
     Indication: HYPERCHOLESTEROLAEMIA
  3. ATENOLOL [Concomitant]
     Indication: HYPERTENSION
  4. ASPIRIN [Concomitant]
  5. ATACAND [Suspect]
     Indication: HYPERTENSION
     Route: 048
     Dates: start: 20100704, end: 20100717

REACTIONS (3)
  - HEART RATE INCREASED [None]
  - MUSCLE SPASMS [None]
  - BLOOD PRESSURE DECREASED [None]
